FAERS Safety Report 10497735 (Version 1)
Quarter: 2014Q4

REPORT INFORMATION
  Report Type: Spontaneous
  Country: CN (occurrence: None)
  Receive Date: 20141002
  Receipt Date: 20141002
  Transmission Date: 20150528
  Serious: Yes (Other)
  Sender: FDA-Public Use
  Company Number: INT_00430_2014

PATIENT
  Sex: Female

DRUGS (2)
  1. CISPLATIN. [Suspect]
     Active Substance: CISPLATIN
     Indication: BREAST CANCER
     Dosage: ON DAY 1 OF EVERY 28 DAY CYCLE ,
  2. PACLITAXEL ALBUMIN [Suspect]
     Active Substance: PACLITAXEL
     Indication: BREAST CANCER
     Dosage: ON DAYS 1,8, AND 15 OF A 28 DAY CYCLE)

REACTIONS (4)
  - Disease progression [None]
  - Toxicity to various agents [None]
  - Rash maculo-papular [None]
  - Dermatitis exfoliative [None]
